FAERS Safety Report 13157227 (Version 1)
Quarter: 2017Q1

REPORT INFORMATION
  Report Type: Spontaneous
  Country: ID (occurrence: ID)
  Receive Date: 20170127
  Receipt Date: 20170127
  Transmission Date: 20170428
  Serious: Yes (Other)
  Sender: FDA-Public Use
  Company Number: ID-ROCHE-1883956

PATIENT

DRUGS (1)
  1. MABTHERA [Suspect]
     Active Substance: RITUXIMAB
     Indication: NON-HODGKIN^S LYMPHOMA
     Route: 065

REACTIONS (3)
  - Non-Hodgkin^s lymphoma recurrent [Unknown]
  - Inappropriate schedule of drug administration [Unknown]
  - Hiccups [Unknown]
